FAERS Safety Report 6955547-0 (Version None)
Quarter: 2010Q3

REPORT INFORMATION
  Report Type: 
  Country: None (occurrence: None)
  Receive Date: 20100826
  Receipt Date: 20100826
  Transmission Date: 20110219
  Serious: No
  Sender: FDA-Public Use
  Company Number: None

PATIENT
  Sex: Female
  Weight: 65 kg

DRUGS (1)
  1. RECLAST [Suspect]
     Indication: OSTEOPOROSIS
     Dosage: 5MG ONCE YEARLY IV DRIP
     Route: 041
     Dates: start: 20100803, end: 20100803

REACTIONS (4)
  - EYE PAIN [None]
  - INFLAMMATION [None]
  - LACRIMATION INCREASED [None]
  - VISION BLURRED [None]
